FAERS Safety Report 10366589 (Version 1)
Quarter: 2014Q3

REPORT INFORMATION
  Report Type: Spontaneous
  Country: FR (occurrence: None)
  Receive Date: 20140804
  Receipt Date: 20140804
  Transmission Date: 20150326
  Serious: Yes (Other)
  Sender: FDA-Public Use
  Company Number: ADR-2014-01339

PATIENT
  Age: 49 Year
  Sex: Male

DRUGS (1)
  1. BACLOFEN (ORAL) [Suspect]
     Active Substance: BACLOFEN
     Indication: ALCOHOLISM
     Dosage: MAX 180MG/DAY

REACTIONS (2)
  - No therapeutic response [None]
  - Mania [None]

NARRATIVE: CASE EVENT DATE: 20140701
